FAERS Safety Report 11038071 (Version 2)
Quarter: 2015Q2

REPORT INFORMATION
  Report Type: Report from Study
  Country: PL (occurrence: PL)
  Receive Date: 20150416
  Receipt Date: 20150423
  Transmission Date: 20150821
  Serious: Yes (Hospitalization)
  Sender: FDA-Public Use
  Company Number: PL-SA-2015SA046689

PATIENT
  Age: 73 Year
  Sex: Male
  Weight: 95 kg

DRUGS (11)
  1. APIDRA [Concomitant]
     Active Substance: INSULIN GLULISINE
     Dosage: DOSE:12 UNIT(S)
     Route: 058
     Dates: start: 2014
  2. FOKUSIN [Concomitant]
     Dosage: STRENGTH: 0.4 UNITS NOT PROVIDED
     Route: 048
     Dates: start: 2013
  3. INSULIN GLARGINE [Suspect]
     Active Substance: INSULIN GLARGINE
     Route: 065
  4. SIOFOR [Concomitant]
     Active Substance: METFORMIN HYDROCHLORIDE
     Dosage: STRENGTH: 850 MG
     Route: 048
     Dates: start: 2010
  5. PENESTER [Concomitant]
     Route: 048
     Dates: start: 2013
  6. INSULIN GLARGINE [Suspect]
     Active Substance: INSULIN GLARGINE
     Route: 065
     Dates: start: 20140831
  7. AGEN [Concomitant]
     Route: 048
     Dates: start: 2014
  8. KARBIS [Concomitant]
     Route: 048
     Dates: start: 2014
  9. TORSEMIDE. [Concomitant]
     Active Substance: TORSEMIDE
     Route: 048
     Dates: start: 2014
  10. TULIP [Concomitant]
     Active Substance: ATORVASTATIN
     Route: 048
     Dates: start: 2013
  11. BETALOC [Concomitant]
     Active Substance: METOPROLOL TARTRATE
     Dosage: STRENGTH: 50 UNITS NOT PROVIDED
     Route: 048
     Dates: start: 2013

REACTIONS (1)
  - Gallbladder empyema [Recovered/Resolved]

NARRATIVE: CASE EVENT DATE: 20150320
